FAERS Safety Report 12452994 (Version 1)
Quarter: 2016Q2

REPORT INFORMATION
  Report Type: Report from Study
  Country: DE (occurrence: DE)
  Receive Date: 20160609
  Receipt Date: 20160609
  Transmission Date: 20160815
  Serious: Yes (Death, Hospitalization)
  Sender: FDA-Public Use
  Company Number: DE-BAXALTA-2014BAX065985

PATIENT
  Age: 35 Year
  Sex: Male
  Weight: 80 kg

DRUGS (7)
  1. HEMOFIL [Suspect]
     Active Substance: ANTIHEMOPHILIC FACTOR HUMAN
     Indication: HAEMORRHAGE PROPHYLAXIS
  2. HEMOFIL [Suspect]
     Active Substance: ANTIHEMOPHILIC FACTOR HUMAN
     Indication: FACTOR VIII DEFICIENCY
     Dosage: 6000 IU, 2X A DAY
     Route: 042
     Dates: start: 19840117, end: 19840330
  3. FEIBA NF [Suspect]
     Active Substance: ANTI-INHIBITOR COAGULANT COMPLEX
     Indication: IMMUNE TOLERANCE INDUCTION
     Dosage: 4000 IU, 1X A DAY
     Route: 042
     Dates: start: 19840117, end: 19840330
  4. FEIBA NF [Suspect]
     Active Substance: ANTI-INHIBITOR COAGULANT COMPLEX
     Indication: HAEMORRHAGE PROPHYLAXIS
     Dosage: 3000 IU, 1X A DAY
     Route: 042
     Dates: start: 19840117, end: 19840330
  5. HEMOFIL [Suspect]
     Active Substance: ANTIHEMOPHILIC FACTOR HUMAN
     Indication: IMMUNE TOLERANCE INDUCTION
  6. FEIBA NF [Suspect]
     Active Substance: ANTI-INHIBITOR COAGULANT COMPLEX
     Indication: HAEMORRHAGE PROPHYLAXIS
  7. FEIBA NF [Suspect]
     Active Substance: ANTI-INHIBITOR COAGULANT COMPLEX
     Indication: IMMUNE TOLERANCE INDUCTION
     Dosage: 0 OR 500 IU, 1X A DAY ALTERNATE 0 AND 500IU
     Route: 042
     Dates: start: 19840117, end: 19840330

REACTIONS (1)
  - Cerebral haemorrhage [Fatal]

NARRATIVE: CASE EVENT DATE: 19840331
